FAERS Safety Report 13496568 (Version 1)
Quarter: 2017Q2

REPORT INFORMATION
  Report Type: Spontaneous
  Country: BE (occurrence: BE)
  Receive Date: 20170428
  Receipt Date: 20170428
  Transmission Date: 20170830
  Serious: Yes (Hospitalization, Other)
  Sender: FDA-Public Use
  Company Number: BE-MYLANLABS-2017M1025693

PATIENT

DRUGS (4)
  1. BETAMETHASONE. [Suspect]
     Active Substance: BETAMETHASONE
     Indication: PROPHYLAXIS
     Route: 065
  2. ATOSIBAN [Suspect]
     Active Substance: ATOSIBAN
     Indication: PROPHYLAXIS
     Route: 065
  3. GLUCOSE [Suspect]
     Active Substance: DEXTROSE
     Indication: HYPOGLYCAEMIA
     Dosage: 5% INFUSION
     Route: 050
  4. DINOPROSTONE. [Suspect]
     Active Substance: DINOPROSTONE
     Indication: INDUCED LABOUR
     Route: 065

REACTIONS (5)
  - Premature labour [Recovered/Resolved]
  - Renal failure [Unknown]
  - Maternal exposure during pregnancy [Recovered/Resolved]
  - Hypoglycaemia [Unknown]
  - Abdominal pain upper [Unknown]
